FAERS Safety Report 9924189 (Version 2)
Quarter: 2014Q1

REPORT INFORMATION
  Report Type: Spontaneous
  Country: US (occurrence: US)
  Receive Date: 20140226
  Receipt Date: 20140301
  Transmission Date: 20141002
  Serious: No
  Sender: FDA-Public Use
  Company Number: US-009507513-1402USA011380

PATIENT
  Sex: Female

DRUGS (1)
  1. DULERA [Suspect]
     Dosage: UNK
     Route: 055

REACTIONS (3)
  - Dysgeusia [Unknown]
  - Poor quality drug administered [Unknown]
  - Product taste abnormal [Unknown]
